FAERS Safety Report 4439528-7 (Version None)
Quarter: 2004Q3

REPORT INFORMATION
  Report Type: 
  Country: None (occurrence: None)
  Receive Date: 20040901
  Receipt Date: 20040901
  Transmission Date: 20050211
  Serious: Yes (Hospitalization)
  Sender: FDA-Public Use
  Company Number: None

PATIENT
  Sex: Male
  Weight: 80.7403 kg

DRUGS (2)
  1. CARDIZEM SR [Suspect]
     Indication: HYPERTENSION
     Dosage: 240 MG PO BID
     Route: 048
     Dates: start: 20040213
  2. LISINOPRIL [Concomitant]

REACTIONS (4)
  - DIZZINESS [None]
  - MALAISE [None]
  - PHARMACEUTICAL PRODUCT COMPLAINT [None]
  - VISION BLURRED [None]
